FAERS Safety Report 24577925 (Version 3)
Quarter: 2025Q3

REPORT INFORMATION
  Report Type: Report from Study
  Country: BR (occurrence: BR)
  Receive Date: 20241104
  Receipt Date: 20250826
  Transmission Date: 20251020
  Serious: Yes (Other)
  Sender: TAKEDA
  Company Number: BR-TAKEDA-2024TUS109753

PATIENT
  Age: 23 Year
  Sex: Female

DRUGS (2)
  1. VEDOLIZUMAB [Suspect]
     Active Substance: VEDOLIZUMAB
     Indication: Crohn^s disease
  2. MESALAMINE [Suspect]
     Active Substance: MESALAMINE
     Indication: Product used for unknown indication

REACTIONS (5)
  - Crohn^s disease [Unknown]
  - Maternal exposure during breast feeding [Unknown]
  - Pregnancy [Recovered/Resolved]
  - Inappropriate schedule of product administration [Unknown]
  - Glucose tolerance impaired in pregnancy [Recovered/Resolved]

NARRATIVE: CASE EVENT DATE: 20250331
